FAERS Safety Report 18820078 (Version 36)
Quarter: 2025Q2

REPORT INFORMATION
  Report Type: Report from Study
  Country: US (occurrence: US)
  Receive Date: 20210202
  Receipt Date: 20250424
  Transmission Date: 20250717
  Serious: Yes (Hospitalization, Other)
  Sender: TAKEDA
  Company Number: US-KAMADA LIMITED-2021US000662

PATIENT
  Age: 61 Year
  Sex: Male
  Weight: 110 kg

DRUGS (73)
  1. GLASSIA [Suspect]
     Active Substance: .ALPHA.1-PROTEINASE INHIBITOR HUMAN
     Indication: Alpha-1 antitrypsin deficiency
     Dosage: 60 MILLIGRAM/KILOGRAM, 1/WEEK
     Dates: start: 20151007
  2. GLASSIA [Suspect]
     Active Substance: .ALPHA.1-PROTEINASE INHIBITOR HUMAN
  3. ARALAST NP [Suspect]
     Active Substance: .ALPHA.1-PROTEINASE INHIBITOR HUMAN
     Indication: Alpha-1 antitrypsin deficiency
     Dosage: 60 MILLIGRAM/KILOGRAM, 1/WEEK
     Dates: start: 20240308
  4. ARALAST NP [Suspect]
     Active Substance: .ALPHA.1-PROTEINASE INHIBITOR HUMAN
  5. KETOROLAC [Suspect]
     Active Substance: KETOROLAC TROMETHAMINE
     Indication: Product used for unknown indication
  6. MOUNJARO [Suspect]
     Active Substance: TIRZEPATIDE
     Indication: Product used for unknown indication
  7. EPINEPHRINE [Concomitant]
     Active Substance: EPINEPHRINE
  8. LEVOCETIRIZINE DIHYDROCHLORIDE [Concomitant]
     Active Substance: LEVOCETIRIZINE DIHYDROCHLORIDE
  9. FUROSEMIDE [Concomitant]
     Active Substance: FUROSEMIDE
  10. DUPIXENT [Concomitant]
     Active Substance: DUPILUMAB
  11. VITAMIN B COMPLEX [Concomitant]
     Active Substance: CYANOCOBALAMIN\DEXPANTHENOL\NIACINAMIDE\PYRIDOXINE HYDROCHLORIDE\RIBOFLAVIN 5^-PHOSPHATE SODIUM\THIA
  12. ACETAMINOPHEN [Concomitant]
     Active Substance: ACETAMINOPHEN
  13. SODIUM CHLORIDE [Concomitant]
     Active Substance: SODIUM CHLORIDE
  14. LORAZEPAM [Concomitant]
     Active Substance: LORAZEPAM
  15. LOSARTAN POTASSIUM [Concomitant]
     Active Substance: LOSARTAN POTASSIUM
  16. ALBUTEROL SULFATE [Concomitant]
     Active Substance: ALBUTEROL SULFATE
  17. ALBUTEROL SULFATE [Concomitant]
     Active Substance: ALBUTEROL SULFATE
  18. AZELASTINE HYDROCHLORIDE [Concomitant]
     Active Substance: AZELASTINE HYDROCHLORIDE
  19. Anefrin [Concomitant]
  20. GAS RELIEF [Concomitant]
     Active Substance: DIMETHICONE
  21. SERTRALINE HYDROCHLORIDE [Concomitant]
     Active Substance: SERTRALINE HYDROCHLORIDE
  22. PULMICORT TURBUHALER [Concomitant]
     Active Substance: BUDESONIDE
  23. ATORVASTATIN CALCIUM [Concomitant]
     Active Substance: ATORVASTATIN CALCIUM
  24. LIDOCAINE [Concomitant]
     Active Substance: LIDOCAINE
  25. TALTZ [Concomitant]
     Active Substance: IXEKIZUMAB
  26. NITROGLYCERIN [Concomitant]
     Active Substance: NITROGLYCERIN
  27. MONTELUKAST SODIUM [Concomitant]
     Active Substance: MONTELUKAST SODIUM
  28. ASPIRIN [Concomitant]
     Active Substance: ASPIRIN
  29. IRON [Concomitant]
     Active Substance: IRON
  30. DIPHENHYDRAMINE HYDROCHLORIDE [Concomitant]
     Active Substance: DIPHENHYDRAMINE HYDROCHLORIDE
  31. SHINGRIX [Concomitant]
     Active Substance: RECOMBINANT VARICELLA ZOSTER VIRUS (VZV) GLYCOPROTEIN E
  32. OMEPRAZOLE [Concomitant]
     Active Substance: OMEPRAZOLE
  33. SYMBICORT [Concomitant]
     Active Substance: BUDESONIDE\FORMOTEROL FUMARATE DIHYDRATE
  34. SIMETHICONE (DIMETHICONE) [Concomitant]
     Active Substance: DIMETHICONE
  35. TRIAMCINOLONE ACETONIDE [Concomitant]
     Active Substance: TRIAMCINOLONE ACETONIDE
  36. ATIVAN [Concomitant]
     Active Substance: LORAZEPAM
  37. XYZAL [Concomitant]
     Active Substance: LEVOCETIRIZINE DIHYDROCHLORIDE
  38. LASIX [Concomitant]
     Active Substance: FUROSEMIDE
     Dosage: UNK UNK, QD
  39. LASIX [Concomitant]
     Active Substance: FUROSEMIDE
     Dosage: UNK UNK, QOD
  40. HEPARIN [Concomitant]
     Active Substance: HEPARIN SODIUM
  41. DIPHENHYDRAMINE [Concomitant]
     Active Substance: DIPHENHYDRAMINE
  42. Lmx [Concomitant]
  43. METFORMIN HYDROCHLORIDE [Concomitant]
     Active Substance: METFORMIN HYDROCHLORIDE
  44. JARDIANCE [Concomitant]
     Active Substance: EMPAGLIFLOZIN
  45. COZAAR [Concomitant]
     Active Substance: LOSARTAN POTASSIUM
  46. SINGULAIR [Concomitant]
     Active Substance: MONTELUKAST SODIUM
     Indication: Product used for unknown indication
  47. FLUBLOK QUADRIVALENT NOS [Concomitant]
     Active Substance: INFLUENZA VIRUS VACCINE
  48. PIOGLITAZONE [Concomitant]
     Active Substance: PIOGLITAZONE
  49. FASENRA [Concomitant]
     Active Substance: BENRALIZUMAB
  50. COSENTYX [Concomitant]
     Active Substance: SECUKINUMAB
  51. TENIVAC [Concomitant]
     Active Substance: CLOSTRIDIUM TETANI TOXOID ANTIGEN (FORMALDEHYDE INACTIVATED)\CORYNEBACTERIUM DIPHTHERIAE TOXOID ANTI
  52. VENTOLIN [Concomitant]
     Active Substance: ALBUTEROL SULFATE
  53. IPRATROPIUM BROMIDE [Concomitant]
     Active Substance: IPRATROPIUM BROMIDE
  54. GABAPENTIN [Concomitant]
     Active Substance: GABAPENTIN
  55. TRAMADOL [Concomitant]
     Active Substance: TRAMADOL
  56. METHOCARBAMOL [Concomitant]
     Active Substance: METHOCARBAMOL
  57. AMLODIPINE BESYLATE [Concomitant]
     Active Substance: AMLODIPINE BESYLATE
  58. ACETAMINOPHEN\HYDROCODONE [Concomitant]
     Active Substance: ACETAMINOPHEN\HYDROCODONE
  59. OXYCODONE AND ACETAMINOPHEN [Concomitant]
     Active Substance: ACETAMINOPHEN\OXYCODONE HYDROCHLORIDE
  60. CODEINE\PROMETHAZINE [Concomitant]
     Active Substance: CODEINE\PROMETHAZINE
  61. IBUPROFEN [Concomitant]
     Active Substance: IBUPROFEN
  62. FLUAD QUADRIVALENT NOS [Concomitant]
     Active Substance: INFLUENZA A VIRUS A/HONG KONG/2671/2019 IVR-208 (H3N2) ANTIGEN (FORMALDEHYDE INACTIVATED)\INFLUENZA
  63. CEPHALEXIN [Concomitant]
     Active Substance: CEPHALEXIN
  64. Gastric [Concomitant]
  65. CLOTRIMAZOLE [Concomitant]
     Active Substance: CLOTRIMAZOLE
  66. CALCIUM [Concomitant]
     Active Substance: CALCIUM
  67. FLONASE ALLERGY RELIEF [Concomitant]
     Active Substance: FLUTICASONE PROPIONATE
  68. CALCIUM\CHOLECALCIFEROL [Concomitant]
     Active Substance: CALCIUM\CHOLECALCIFEROL
  69. MELOXICAM [Concomitant]
     Active Substance: MELOXICAM
  70. BUDESONIDE [Concomitant]
     Active Substance: BUDESONIDE
  71. VITAMIN D3 [Concomitant]
     Active Substance: CHOLECALCIFEROL
  72. ELIQUIS [Concomitant]
     Active Substance: APIXABAN
  73. METOPROLOL SUCCINATE [Concomitant]
     Active Substance: METOPROLOL SUCCINATE

REACTIONS (46)
  - Bradycardia [Unknown]
  - Bronchiolitis [Unknown]
  - Cholecystitis infective [Unknown]
  - Vaccination site pain [Unknown]
  - Arthritis [Unknown]
  - Blood pressure decreased [Unknown]
  - Arthralgia [Unknown]
  - Contusion [Unknown]
  - Pharyngitis streptococcal [Unknown]
  - Respiratory tract infection [Not Recovered/Not Resolved]
  - Paranasal sinus hypersecretion [Not Recovered/Not Resolved]
  - Oropharyngeal pain [Unknown]
  - Respiratory tract congestion [Unknown]
  - Pallor [Unknown]
  - Heart rate decreased [Unknown]
  - Weight increased [Unknown]
  - Hot flush [Unknown]
  - Hyperhidrosis [Unknown]
  - Localised oedema [Unknown]
  - Pain in extremity [Not Recovered/Not Resolved]
  - Flatulence [Unknown]
  - Axillary pain [Unknown]
  - Drug hypersensitivity [Unknown]
  - Fall [Unknown]
  - Face injury [Unknown]
  - Skin abrasion [Unknown]
  - Anxiety [Not Recovered/Not Resolved]
  - Dyspnoea exertional [Not Recovered/Not Resolved]
  - Heart valve incompetence [Unknown]
  - Heart rate irregular [Unknown]
  - COVID-19 [Not Recovered/Not Resolved]
  - Peripheral swelling [Unknown]
  - Product dose omission issue [Unknown]
  - Product use issue [Unknown]
  - Constipation [Unknown]
  - Abdominal discomfort [Unknown]
  - Abdominal distension [Unknown]
  - Oedema peripheral [Unknown]
  - Asthenia [Unknown]
  - Chest pain [Unknown]
  - Malaise [Unknown]
  - Chest discomfort [Recovered/Resolved]
  - Fatigue [Unknown]
  - Cough [Unknown]
  - Dyspnoea [Not Recovered/Not Resolved]
  - Headache [Unknown]

NARRATIVE: CASE EVENT DATE: 20220101
